FAERS Safety Report 13063507 (Version 1)
Quarter: 2016Q4

REPORT INFORMATION
  Report Type: Report from Study
  Country: US (occurrence: US)
  Receive Date: 20161227
  Receipt Date: 20161227
  Transmission Date: 20170207
  Serious: Yes (Hospitalization)
  Sender: FDA-Public Use
  Company Number: US-ROCHE-1870702

PATIENT
  Age: 72 Year
  Sex: Male
  Weight: 64.92 kg

DRUGS (6)
  1. ESBRIET [Suspect]
     Active Substance: PIRFENIDONE
     Dosage: 2 PILL 3 TIMES PER DAY, ONGOING : NO
     Route: 048
     Dates: start: 2016, end: 2016
  2. BACTRIM [Suspect]
     Active Substance: SULFAMETHOXAZOLE\TRIMETHOPRIM
     Indication: PRODUCT USED FOR UNKNOWN INDICATION
     Route: 065
  3. ESBRIET [Suspect]
     Active Substance: PIRFENIDONE
     Dosage: 1 PILL 3 TIMES PER DAY, ONGOING : NO
     Route: 048
     Dates: start: 2016, end: 2016
  4. ESBRIET [Suspect]
     Active Substance: PIRFENIDONE
     Dosage: 1-BREAKFAST 1-LUNCH AND 2-WITH DINNER ;ONGOING: YES
     Route: 048
     Dates: start: 20161103
  5. ESBRIET [Suspect]
     Active Substance: PIRFENIDONE
     Dosage: 3 PILL 3 TIMES PER DAY, ONGOING : NO
     Route: 048
     Dates: start: 2016, end: 2016
  6. ESBRIET [Suspect]
     Active Substance: PIRFENIDONE
     Indication: IDIOPATHIC PULMONARY FIBROSIS
     Dosage: 2 CAPSULES 3 TIMES PER DAY ;ONGOING: YES
     Route: 048
     Dates: start: 20161021

REACTIONS (10)
  - Heart rate increased [Recovered/Resolved]
  - Headache [Recovered/Resolved]
  - Chest pain [Recovered/Resolved]
  - Nausea [Recovered/Resolved]
  - Diarrhoea [Recovered/Resolved]
  - Decreased appetite [Recovered/Resolved]
  - Tremor [Recovered/Resolved]
  - Pneumonia [Recovered/Resolved]
  - Musculoskeletal pain [Recovered/Resolved]
  - Drug hypersensitivity [Unknown]

NARRATIVE: CASE EVENT DATE: 20161030
